FAERS Safety Report 7399441-2 (Version None)
Quarter: 2011Q2

REPORT INFORMATION
  Report Type: 
  Country: None (occurrence: None)
  Receive Date: 20110407
  Receipt Date: 20110325
  Transmission Date: 20111010
  Serious: Yes (Hospitalization, Other)
  Sender: FDA-Public Use
  Company Number: PHFR2011IE02188

PATIENT
  Sex: Male

DRUGS (4)
  1. CLOZARIL [Suspect]
     Indication: SCHIZOPHRENIA
     Dosage: 275 MG
     Route: 048
     Dates: start: 20080306
  2. CLOZARIL [Suspect]
     Dosage: 350 MG, UNK
     Route: 048
  3. ARIPIPRAZOLE [Concomitant]
     Dosage: UNK DF, UNK
  4. CLOZARIL [Suspect]
     Dosage: 300 MG, UNK
     Route: 048

REACTIONS (9)
  - BALANCE DISORDER [None]
  - DYSPHEMIA [None]
  - GAMMA-GLUTAMYLTRANSFERASE INCREASED [None]
  - ARRHYTHMIA [None]
  - GAIT DISTURBANCE [None]
  - FEAR OF FALLING [None]
  - GRAND MAL CONVULSION [None]
  - MENTAL DISORDER [None]
  - BLOOD ALKALINE PHOSPHATASE INCREASED [None]
